FAERS Safety Report 24109518 (Version 12)
Quarter: 2025Q3

REPORT INFORMATION
  Report Type: Spontaneous
  Country: EU (occurrence: EU)
  Receive Date: 20240718
  Receipt Date: 20250912
  Transmission Date: 20251020
  Serious: Yes (Life-Threatening, Hospitalization, Other)
  Sender: AUROBINDO
  Company Number: EU-AZEVEDOSP-2024-00300

PATIENT
  Age: 20 Year
  Sex: Female

DRUGS (5)
  1. ACETAMINOPHEN [Interacting]
     Active Substance: ACETAMINOPHEN
     Indication: Binge drinking
     Dosage: 3 GRAM, ONCE A DAY (3 G/DAY, 3X/WEEK AFTER ALCOHOL CONSUMPTION)
     Route: 065
  2. ACETAMINOPHEN [Interacting]
     Active Substance: ACETAMINOPHEN
     Indication: Alcoholic hangover
     Dosage: 3 GRAM, ONCE A DAY (3 G/DAY, 3X/WEEK AFTER ALCOHOL CONSUMPTION)
     Route: 065
  3. ACETAMINOPHEN [Interacting]
     Active Substance: ACETAMINOPHEN
     Indication: Hangover
  4. ALCOHOL [Suspect]
     Active Substance: ALCOHOL
     Indication: Product used for unknown indication
     Route: 065
  5. CANNABIDIOL\HERBALS\TETRAHYDROCANNABINOL UNSPECIFIED [Suspect]
     Active Substance: CANNABIDIOL\HERBALS\TETRAHYDROCANNABINOL UNSPECIFIED
     Indication: Product used for unknown indication
     Route: 065

REACTIONS (27)
  - Acute hepatic failure [Recovering/Resolving]
  - Hepatic encephalopathy [Recovering/Resolving]
  - Hyperammonaemia [Recovering/Resolving]
  - Overdose [Unknown]
  - Pancytopenia [Recovering/Resolving]
  - Coagulopathy [Recovering/Resolving]
  - Hyperammonaemia [Recovering/Resolving]
  - Toxicity to various agents [Recovering/Resolving]
  - Hypoalbuminaemia [Recovering/Resolving]
  - Respiratory alkalosis [Recovering/Resolving]
  - Intentional product misuse [Recovering/Resolving]
  - Hepatitis acute [Recovering/Resolving]
  - Hepatic failure [Recovered/Resolved]
  - Pyrexia [Recovering/Resolving]
  - Weight decreased [Recovering/Resolving]
  - Drug interaction [Recovering/Resolving]
  - Drug abuse [Unknown]
  - Vomiting [Recovering/Resolving]
  - Human herpesvirus 6 infection [Unknown]
  - Abdominal pain [Recovering/Resolving]
  - Drug level increased [Unknown]
  - Encephalopathy [Recovering/Resolving]
  - Hepatic cytolysis [Recovering/Resolving]
  - Gingival bleeding [Recovering/Resolving]
  - Pyrexia [Recovering/Resolving]
  - Anorexia nervosa [Unknown]
  - Labelled drug-food interaction issue [Unknown]
